FAERS Safety Report 6038933-5 (Version None)
Quarter: 2009Q1

REPORT INFORMATION
  Report Type: 
  Country: None (occurrence: None)
  Receive Date: 20090114
  Receipt Date: 20090114
  Transmission Date: 20090719
  Serious: No
  Sender: FDA-Public Use
  Company Number: None

PATIENT
  Age: 56 Year
  Sex: Female

DRUGS (1)
  1. VAGIFEM [Suspect]
     Indication: HORMONE REPLACEMENT THERAPY
     Dosage: 1 SUPPOSITORY TWO TIMES-WEEKLY VAG
     Route: 067
     Dates: start: 20080626, end: 20081231

REACTIONS (3)
  - PRODUCT QUALITY ISSUE [None]
  - VAGINAL ERYTHEMA [None]
  - VAGINAL MUCOSAL BLISTERING [None]
